FAERS Safety Report 15424006 (Version 4)
Quarter: 2018Q4

REPORT INFORMATION
  Report Type: Spontaneous
  Country: JP (occurrence: JP)
  Receive Date: 20180925
  Receipt Date: 20181210
  Transmission Date: 20190204
  Serious: Yes (Other)
  Sender: FDA-Public Use
  Company Number: JP-GLAXOSMITHKLINE-JP2018JPN169798

PATIENT
  Age: 13 Year
  Sex: Male
  Weight: 49 kg

DRUGS (11)
  1. SERETIDE [Suspect]
     Active Substance: FLUTICASONE PROPIONATE\SALMETEROL XINAFOATE
     Indication: ASTHMA
     Dosage: 500 UG, BID
     Route: 055
     Dates: start: 201508, end: 20170510
  2. SERETIDE [Suspect]
     Active Substance: FLUTICASONE PROPIONATE\SALMETEROL XINAFOATE
     Indication: ASTHMA
     Dosage: 200 ?G, 1D
     Route: 055
  3. THEODUR TABLETS [Concomitant]
     Dosage: 400 MG, 1D
     Route: 048
  4. SERETIDE [Suspect]
     Active Substance: FLUTICASONE PROPIONATE\SALMETEROL XINAFOATE
     Indication: ASTHMA
     Dosage: 100 ?G, BID
     Route: 055
     Dates: start: 20170615
  5. EBASTINE [Concomitant]
     Active Substance: EBASTINE
     Dosage: 10 MG, 1D
     Route: 048
  6. CLARITHROMYCIN. [Concomitant]
     Active Substance: CLARITHROMYCIN
     Indication: DIFFUSE PANBRONCHIOLITIS
     Dosage: UNK
     Route: 048
  7. SERETIDE [Suspect]
     Active Substance: FLUTICASONE PROPIONATE\SALMETEROL XINAFOATE
     Indication: ASTHMA
     Dosage: 250 UG, BID
     Route: 055
     Dates: start: 201408, end: 201508
  8. SYMBICORT [Concomitant]
     Active Substance: BUDESONIDE\FORMOTEROL FUMARATE DIHYDRATE
     Indication: ASTHMA
     Dosage: 960 UG, BID
     Route: 055
     Dates: start: 20170511, end: 20170614
  9. MONTELUKAST SODIUM TABLET [Concomitant]
     Active Substance: MONTELUKAST SODIUM
     Dosage: 10 MG, 1D
     Route: 048
  10. CARBOCISTEINE TABLETS [Concomitant]
     Active Substance: CARBOCYSTEINE
     Dosage: 1000 MG, 1D
     Route: 048
  11. CHINESE MEDICINE [Concomitant]
     Active Substance: UNSPECIFIED INGREDIENT
     Dosage: UNK
     Route: 048

REACTIONS (4)
  - Drug effect incomplete [Unknown]
  - Off label use [Unknown]
  - Prescribed overdose [Unknown]
  - Failure to thrive [Recovering/Resolving]

NARRATIVE: CASE EVENT DATE: 201704
